FAERS Safety Report 6187645-6 (Version None)
Quarter: 2009Q2

REPORT INFORMATION
  Report Type: 
  Country: None (occurrence: None)
  Receive Date: 20090511
  Receipt Date: 20090427
  Transmission Date: 20091009
  Serious: Yes (Other)
  Sender: FDA-Public Use
  Company Number: 09-000659

PATIENT
  Sex: Female

DRUGS (2)
  1. PYRIDIUM PLUS (PHENAZOPYRIDINE HYDROCHLORIDE..) [Suspect]
     Dosage: ORAL
     Route: 048
  2. PHENOBARBITAL TAB [Suspect]

REACTIONS (4)
  - CHOKING [None]
  - DRY MOUTH [None]
  - EATING DISORDER SYMPTOM [None]
  - REMOVAL OF FOREIGN BODY [None]
